FAERS Safety Report 11502601 (Version 1)
Quarter: 2015Q3

REPORT INFORMATION
  Report Type: Spontaneous
  Country: US (occurrence: US)
  Receive Date: 20150914
  Receipt Date: 20150914
  Transmission Date: 20151125
  Serious: No
  Sender: FDA-Public Use
  Company Number: US-ASTELLAS-2015US022563

PATIENT
  Sex: Male

DRUGS (1)
  1. XTANDI [Suspect]
     Active Substance: ENZALUTAMIDE
     Indication: HORMONE-REFRACTORY PROSTATE CANCER
     Dosage: 160 MG (40MG X 4 CAPSULES), ONCE DAILY
     Route: 048

REACTIONS (3)
  - Abdominal discomfort [Unknown]
  - Abdominal pain upper [Unknown]
  - Headache [Unknown]
